FAERS Safety Report 24877045 (Version 4)
Quarter: 2025Q1

REPORT INFORMATION
  Report Type: Spontaneous
  Country: BR (occurrence: BR)
  Receive Date: 20250123
  Receipt Date: 20250203
  Transmission Date: 20250408
  Serious: Yes (Hospitalization, Other)
  Sender: CELLTRION
  Company Number: BR-CELLTRION INC.-2025BR001620

PATIENT

DRUGS (1)
  1. INFLIXIMAB [Suspect]
     Active Substance: INFLIXIMAB
     Indication: Colitis ulcerative
     Route: 042
     Dates: start: 202108

REACTIONS (6)
  - Gastrointestinal inflammation [Unknown]
  - Haematochezia [Unknown]
  - Intestinal haemorrhage [Unknown]
  - Weight fluctuation [Unknown]
  - Diarrhoea [Unknown]
  - Loss of therapeutic response [Unknown]
